FAERS Safety Report 26155871 (Version 2)
Quarter: 2025Q4

REPORT INFORMATION
  Report Type: Spontaneous
  Country: CN (occurrence: CN)
  Receive Date: 20251215
  Receipt Date: 20251219
  Transmission Date: 20260118
  Serious: Yes (Hospitalization)
  Sender: MACLEODS
  Company Number: CN-MACLEODS PHARMA-MAC2025057046

PATIENT

DRUGS (20)
  1. LINEZOLID [Suspect]
     Active Substance: LINEZOLID
     Indication: Ulcer
     Dosage: DAY TIME
     Route: 048
     Dates: start: 20230213, end: 202305
  2. LINEZOLID [Suspect]
     Active Substance: LINEZOLID
     Indication: Necrosis
  3. LINEZOLID [Suspect]
     Active Substance: LINEZOLID
     Indication: Lymph node tuberculosis
  4. PYRAZINAMIDE [Suspect]
     Active Substance: PYRAZINAMIDE
     Indication: Tuberculosis
     Route: 048
     Dates: start: 20230213, end: 202305
  5. PYRAZINAMIDE [Suspect]
     Active Substance: PYRAZINAMIDE
     Indication: Lymph node tuberculosis
  6. ETHAMBUTOL [Suspect]
     Active Substance: ETHAMBUTOL HYDROCHLORIDE
     Indication: Tuberculosis
     Dosage: DAY TIME
     Route: 048
     Dates: start: 20230213, end: 202305
  7. ETHAMBUTOL [Suspect]
     Active Substance: ETHAMBUTOL HYDROCHLORIDE
     Indication: Lymph node tuberculosis
  8. BEDAQUILINE [Suspect]
     Active Substance: BEDAQUILINE
     Indication: Ulcer
     Dosage: (TAKEN AS 200 MG/TIME WITH 3 TIMES PER WEEK AFTER 14 DAYS
     Route: 048
     Dates: start: 20230213, end: 20230227
  9. BEDAQUILINE [Suspect]
     Active Substance: BEDAQUILINE
     Indication: Necrosis
  10. BEDAQUILINE [Suspect]
     Active Substance: BEDAQUILINE
     Indication: Lymph node tuberculosis
     Dosage: (TAKEN AS 200 MG/TIME WITH 3 TIMES PER WEEK AFTER 14 DAYS
     Route: 048
     Dates: start: 20230227, end: 202305
  11. AMIKACIN [Suspect]
     Active Substance: AMIKACIN
     Indication: Tuberculosis
     Dosage: 0.6 G/ (DAYTIME) OF AM (0.2 G/PIECE)
     Route: 030
     Dates: start: 20230213, end: 202305
  12. AMIKACIN [Suspect]
     Active Substance: AMIKACIN
     Indication: Lymph node tuberculosis
  13. CLOFAZIMINE [Suspect]
     Active Substance: CLOFAZIMINE
     Indication: Ulcer
     Route: 048
     Dates: start: 20230213, end: 202305
  14. CLOFAZIMINE [Suspect]
     Active Substance: CLOFAZIMINE
     Indication: Necrosis
  15. CLOFAZIMINE [Suspect]
     Active Substance: CLOFAZIMINE
     Indication: Tuberculosis
  16. CYCLOSERINE [Suspect]
     Active Substance: CYCLOSERINE
     Indication: Tuberculosis
     Route: 048
     Dates: start: 20230213, end: 202305
  17. CYCLOSERINE [Suspect]
     Active Substance: CYCLOSERINE
     Indication: Ulcer
  18. CYCLOSERINE [Suspect]
     Active Substance: CYCLOSERINE
     Indication: Necrosis
  19. VITAMIN B6 [Concomitant]
     Active Substance: PYRIDOXINE HYDROCHLORIDE
     Dosage: 250 MG/TIME OF CS CAPSULES WITH 50 MG/TIME OF VITAMIN B6
     Route: 065
     Dates: start: 20230213
  20. VITAMIN B6 [Concomitant]
     Active Substance: PYRIDOXINE HYDROCHLORIDE

REACTIONS (2)
  - Drug-induced liver injury [Recovered/Resolved]
  - Hepatitis fulminant [Recovered/Resolved]

NARRATIVE: CASE EVENT DATE: 20230519
